FAERS Safety Report 10375129 (Version 1)
Quarter: 2014Q3

REPORT INFORMATION
  Report Type: Spontaneous
  Country: GB (occurrence: GB)
  Receive Date: 20140811
  Receipt Date: 20140811
  Transmission Date: 20150326
  Serious: Yes (Disabling, Other)
  Sender: FDA-Public Use
  Company Number: GB-PFIZER INC-2014219698

PATIENT
  Age: 38 Year
  Sex: Female

DRUGS (2)
  1. PREGABALIN. [Suspect]
     Active Substance: PREGABALIN
     Dosage: UNK
  2. METHADONE [Concomitant]
     Active Substance: METHADONE HYDROCHLORIDE
     Indication: DRUG DEPENDENCE
     Dosage: 30 MG, UNK
     Route: 048

REACTIONS (3)
  - Drug abuse [Not Recovered/Not Resolved]
  - Drug tolerance increased [Not Recovered/Not Resolved]
  - Drug dependence [Not Recovered/Not Resolved]
